FAERS Safety Report 9165046 (Version 1)
Quarter: 2013Q1

REPORT INFORMATION
  Report Type: Spontaneous
  Country: US (occurrence: US)
  Receive Date: 20130315
  Receipt Date: 20130315
  Transmission Date: 20140127
  Serious: Yes (Other)
  Sender: FDA-Public Use
  Company Number: US-JNJFOC-20130306996

PATIENT
  Age: 2 Year
  Sex: Female
  Weight: 13.61 kg

DRUGS (1)
  1. CHILDREN^S TYLENOL [Suspect]
     Indication: PYREXIA
     Dosage: 160 MG/5 ML, 1 TEASPOON
     Route: 048
     Dates: start: 20130307

REACTIONS (2)
  - Blood glucose increased [Recovering/Resolving]
  - Product label issue [Unknown]
